FAERS Safety Report 9850366 (Version 2)
Quarter: 2014Q1

REPORT INFORMATION
  Report Type: Spontaneous
  Country: US (occurrence: US)
  Receive Date: 20140128
  Receipt Date: 20140224
  Transmission Date: 20141002
  Serious: Yes (Other)
  Sender: FDA-Public Use
  Company Number: US-GILEAD-2014-0092792

PATIENT
  Age: 67 Year
  Sex: Male
  Weight: 77.98 kg

DRUGS (2)
  1. ATRIPLA [Suspect]
     Indication: HIV INFECTION
     Dosage: 1100 MG, UNK
     Route: 048
     Dates: start: 2006, end: 20140119
  2. LISINOPRIL [Concomitant]
     Indication: HYPERTENSION
     Dosage: UNK
     Route: 048

REACTIONS (15)
  - Dermatitis bullous [Recovering/Resolving]
  - Nasopharyngitis [Unknown]
  - Dry skin [Unknown]
  - Dry skin [Unknown]
  - Muscle atrophy [Unknown]
  - Furuncle [Unknown]
  - Skin wrinkling [Unknown]
  - Skin disorder [Unknown]
  - Blister [Unknown]
  - Pruritus genital [Unknown]
  - Rash [Unknown]
  - Pruritus [Unknown]
  - Urticaria [Unknown]
  - Rash [Recovering/Resolving]
  - Pruritus [Unknown]
